FAERS Safety Report 7688934-6 (Version None)
Quarter: 2011Q3

REPORT INFORMATION
  Report Type: 
  Country: None (occurrence: None)
  Receive Date: 20110817
  Receipt Date: 20110810
  Transmission Date: 20111222
  Serious: Yes (Other)
  Sender: FDA-Public Use
  Company Number: PHHO2011DE13576

PATIENT
  Sex: Female
  Weight: 65 kg

DRUGS (2)
  1. VIANI [Concomitant]
     Indication: CHRONIC OBSTRUCTIVE PULMONARY DISEASE
     Dosage: ONE PUFF/ DAY
     Dates: start: 20100101, end: 20110622
  2. EVEROLIMUS [Suspect]
     Indication: MALIGNANT NEOPLASM OF ISLETS OF LANGERHANS
     Dosage: 10 MG, BID
     Route: 048
     Dates: start: 20070404, end: 20110621

REACTIONS (2)
  - PNEUMONITIS [None]
  - CONCOMITANT DISEASE PROGRESSION [None]
